FAERS Safety Report 4370799-1 (Version None)
Quarter: 2004Q2

REPORT INFORMATION
  Report Type: 
  Country: None (occurrence: None)
  Receive Date: 20040602
  Receipt Date: 20040602
  Transmission Date: 20050107
  Serious: Yes (Other)
  Sender: FDA-Public Use
  Company Number: None

PATIENT
  Age: 32 Year
  Sex: Male

DRUGS (1)
  1. SUN BATH TANNING LOTION [Suspect]
     Indication: PROPHYLAXIS AGAINST SOLAR RADIATION
     Dosage: PRN TOPICAL
     Route: 061
     Dates: start: 20040423, end: 20040428

REACTIONS (7)
  - BLISTER [None]
  - ERYTHEMA [None]
  - MOBILITY DECREASED [None]
  - PAIN [None]
  - PRURITUS [None]
  - SKIN REACTION [None]
  - SKIN SWELLING [None]
